FAERS Safety Report 22604104 (Version 1)
Quarter: 2023Q2

REPORT INFORMATION
  Report Type: Spontaneous
  Country: IT (occurrence: IT)
  Receive Date: 20230615
  Receipt Date: 20230615
  Transmission Date: 20230722
  Serious: Yes (Other)
  Sender: FDA-Public Use
  Company Number: IT-CHEPLA-2023006520

PATIENT
  Age: 56 Year
  Sex: Female

DRUGS (9)
  1. KEYTRUDA [Suspect]
     Active Substance: PEMBROLIZUMAB
     Indication: Triple negative breast cancer
     Dosage: Q3W
     Route: 042
     Dates: start: 20220727
  2. CARBOPLATIN [Suspect]
     Active Substance: CARBOPLATIN
     Indication: Triple negative breast cancer
     Dosage: 6TH CYCLE, QW
     Route: 042
     Dates: start: 20220907
  3. CARBOPLATIN [Suspect]
     Active Substance: CARBOPLATIN
     Dosage: QW
     Route: 042
     Dates: start: 20221004, end: 20221018
  4. CARBOPLATIN [Suspect]
     Active Substance: CARBOPLATIN
     Dosage: 1ST CYCLE, QW,NEOADJUVANT CHEMOTHERAPY
     Route: 042
     Dates: start: 20220727
  5. PACLITAXEL [Suspect]
     Active Substance: PACLITAXEL
     Indication: Triple negative breast cancer
     Dosage: 9TH CYCLE,QW
     Route: 042
     Dates: start: 20221004, end: 20221018
  6. PACLITAXEL [Suspect]
     Active Substance: PACLITAXEL
     Dosage: 6THCYCLE,QW
     Route: 042
     Dates: start: 20220907
  7. PACLITAXEL [Suspect]
     Active Substance: PACLITAXEL
     Dosage: 1ST CYCLE,QW,NEOADJUVANT CHEMOTHERAPY
     Route: 042
     Dates: start: 20220727
  8. CYCLOPHOSPHAMIDE [Suspect]
     Active Substance: CYCLOPHOSPHAMIDE
     Indication: Triple negative breast cancer
     Dosage: 4TH CYCLE
     Dates: end: 20230110
  9. EPIRUBICIN [Suspect]
     Active Substance: EPIRUBICIN
     Indication: Triple negative breast cancer
     Dosage: 4TH CYCLE
     Dates: end: 20230110

REACTIONS (4)
  - Myelosuppression [Unknown]
  - Anaemia [Recovered/Resolved]
  - Hypersensitivity [Recovered/Resolved]
  - Anaemia [Recovered/Resolved]

NARRATIVE: CASE EVENT DATE: 20220830
